FAERS Safety Report 16982883 (Version 1)
Quarter: 2019Q4

REPORT INFORMATION
  Report Type: Spontaneous
  Country: US (occurrence: US)
  Receive Date: 20191101
  Receipt Date: 20191101
  Transmission Date: 20200122
  Serious: No
  Sender: FDA-Public Use
  Company Number: US-SUNOVION-2019SUN004635

PATIENT

DRUGS (10)
  1. PROZAC [Suspect]
     Active Substance: FLUOXETINE HYDROCHLORIDE
  2. VIIBRYD [Suspect]
     Active Substance: VILAZODONE HYDROCHLORIDE
  3. WELLBUTRIN [Suspect]
     Active Substance: BUPROPION HYDROCHLORIDE
  4. LATUDA [Suspect]
     Active Substance: LURASIDONE HYDROCHLORIDE
     Dosage: UNK
     Route: 048
  5. LAMICTAL [Suspect]
     Active Substance: LAMOTRIGINE
  6. LUVOX [Suspect]
     Active Substance: FLUVOXAMINE MALEATE
  7. LEXAPRO [Suspect]
     Active Substance: ESCITALOPRAM OXALATE
  8. SEROQUEL [Suspect]
     Active Substance: QUETIAPINE FUMARATE
  9. PRISTIQ EXTENDED-RELEASE [Suspect]
     Active Substance: DESVENLAFAXINE SUCCINATE
  10. CELEXA [Suspect]
     Active Substance: CITALOPRAM HYDROBROMIDE

REACTIONS (3)
  - Feeling abnormal [Unknown]
  - Euphoric mood [Unknown]
  - Drug ineffective [Unknown]
